FAERS Safety Report 21063439 (Version 1)
Quarter: 2022Q3

REPORT INFORMATION
  Report Type: Spontaneous
  Country: PL (occurrence: PL)
  Receive Date: 20220711
  Receipt Date: 20220711
  Transmission Date: 20221026
  Serious: Yes (Hospitalization, Other)
  Sender: FDA-Public Use
  Company Number: PL-ASTELLAS-2022US023911

PATIENT
  Age: 55 Year
  Sex: Female

DRUGS (8)
  1. TACROLIMUS [Suspect]
     Active Substance: TACROLIMUS
     Indication: Liver transplant
     Dosage: UNK UNK, UNKNOWN FREQ.
     Route: 065
     Dates: start: 201905, end: 201909
  2. TACROLIMUS [Suspect]
     Active Substance: TACROLIMUS
     Dosage: UNK UNK, UNKNOWN FREQ.
     Route: 065
     Dates: start: 201909
  3. MEROPENEM [Concomitant]
     Active Substance: MEROPENEM
     Indication: Antibiotic prophylaxis
     Dosage: 1 G, UNKNOWN FREQ. (3)
     Route: 065
     Dates: start: 201905
  4. VANCOMYCIN [Concomitant]
     Active Substance: VANCOMYCIN
     Indication: Antibiotic prophylaxis
     Dosage: 1 G, UNKNOWN FREQ. (2)
     Route: 065
     Dates: start: 201905
  5. TAZOBACTAM [Concomitant]
     Active Substance: TAZOBACTAM
     Indication: Antibiotic prophylaxis
     Dosage: 4.5 G, UNKNOWN FREQ. (3)
     Route: 065
     Dates: start: 201905
  6. FLUCONAZOLE [Concomitant]
     Active Substance: FLUCONAZOLE
     Indication: Antifungal treatment
     Dosage: 600 MG, UNKNOWN FREQ. (1)
     Route: 065
     Dates: start: 201905
  7. FONDAPARINUX [Concomitant]
     Active Substance: FONDAPARINUX
     Indication: Anticoagulant therapy
     Dosage: UNK UNK, UNKNOWN FREQ.
     Route: 065
     Dates: start: 201905
  8. ORNITHINE [Concomitant]
     Active Substance: ORNITHINE
     Indication: Drug therapy
     Dosage: UNK UNK, UNKNOWN FREQ.
     Route: 065
     Dates: start: 201905

REACTIONS (14)
  - Toxicity to various agents [Recovered/Resolved]
  - Nephropathy toxic [Recovered/Resolved]
  - Cytomegalovirus infection [Unknown]
  - Epstein-Barr virus infection [Unknown]
  - Oesophageal candidiasis [Unknown]
  - Candida infection [Unknown]
  - Urinary tract candidiasis [Unknown]
  - Enterobacter bacteraemia [Unknown]
  - Enterobacter infection [Unknown]
  - Urinary tract infection [Unknown]
  - Candida infection [Unknown]
  - Urinary tract candidiasis [Unknown]
  - Bacteriuria [Unknown]
  - Overdose [Unknown]

NARRATIVE: CASE EVENT DATE: 20190601
